FAERS Safety Report 16821228 (Version 1)
Quarter: 2019Q3

REPORT INFORMATION
  Report Type: Spontaneous
  Country: DE (occurrence: DE)
  Receive Date: 20190918
  Receipt Date: 20190918
  Transmission Date: 20191005
  Serious: Yes (Life-Threatening, Hospitalization, Other)
  Sender: FDA-Public Use
  Company Number: DE-TORRENT-00015505

PATIENT
  Age: 43 Year
  Sex: Female

DRUGS (4)
  1. BUDESONIDE 320UG, FORMOTEROL 9 UG [Concomitant]
     Indication: ASTHMA
     Dosage: FIXED-DOSE COMBINATION, 12 HOURLY
     Route: 055
  2. QUETIAPINE. [Suspect]
     Active Substance: QUETIAPINE
     Indication: PRODUCT USED FOR UNKNOWN INDICATION
     Dosage: UNKNOWN DOSES
  3. IBUPROFEN. [Suspect]
     Active Substance: IBUPROFEN
     Indication: PRODUCT USED FOR UNKNOWN INDICATION
     Dosage: UNKNOWN DOSES
  4. TIOTROPIUM [Concomitant]
     Active Substance: TIOTROPIUM
     Indication: ASTHMA
     Route: 055

REACTIONS (6)
  - Asthma [Recovered/Resolved]
  - Status asthmaticus [Recovered/Resolved]
  - Lung infiltration [Recovered/Resolved]
  - Respiratory acidosis [Recovered/Resolved]
  - Toxicity to various agents [Recovered/Resolved]
  - Hypercapnia [Recovered/Resolved]
